FAERS Safety Report 17863636 (Version 2)
Quarter: 2020Q3

REPORT INFORMATION
  Report Type: Report from Study
  Country: NO (occurrence: NO)
  Receive Date: 20200604
  Receipt Date: 20200702
  Transmission Date: 20201103
  Serious: Yes (Hospitalization)
  Sender: FDA-Public Use
  Company Number: NO-BRISTOL-MYERS SQUIBB COMPANY-BMS-2020-041652

PATIENT
  Age: 64 Year
  Sex: Male
  Weight: 80 kg

DRUGS (5)
  1. CISPLATIN. [Suspect]
     Active Substance: CISPLATIN
     Indication: TRANSITIONAL CELL CARCINOMA
     Dosage: 144 MILLIGRAM, Q3WK
     Route: 042
     Dates: start: 20200406
  2. PELGRAZ [Concomitant]
     Active Substance: PEGFILGRASTIM
     Indication: PRODUCT USED FOR UNKNOWN INDICATION
     Dosage: 6 MILLIGRAM
     Route: 065
     Dates: start: 20200521
  3. GEMCITABINE HYDROCHLORIDE. [Suspect]
     Active Substance: GEMCITABINE HYDROCHLORIDE
     Indication: TRANSITIONAL CELL CARCINOMA
     Dosage: 2050 MILLIGRAM, Q3WK
     Route: 042
     Dates: start: 20200406
  4. LIPITOR [Concomitant]
     Active Substance: ATORVASTATIN CALCIUM
     Indication: PRODUCT USED FOR UNKNOWN INDICATION
     Dosage: 20 MILLIGRAM
     Route: 065
     Dates: start: 20100401
  5. NIVOLUMAB [Suspect]
     Active Substance: NIVOLUMAB
     Indication: TRANSITIONAL CELL CARCINOMA
     Dosage: 360 MILLIGRAM, Q3WK
     Route: 042
     Dates: start: 20200406

REACTIONS (3)
  - Palpitations [Recovered/Resolved]
  - Supraventricular tachycardia [Recovered/Resolved]
  - Wheezing [Recovered/Resolved]

NARRATIVE: CASE EVENT DATE: 20200525
